FAERS Safety Report 8693208 (Version 2)
Quarter: 2013Q1

REPORT INFORMATION
  Report Type: Spontaneous
  Country: US (occurrence: US)
  Receive Date: 20120730
  Receipt Date: 20130212
  Transmission Date: 20140127
  Serious: Yes (Hospitalization)
  Sender: FDA-Public Use
  Company Number: US-BAYER-2012-073425

PATIENT
  Age: 25 Year
  Sex: Female
  Weight: 108.84 kg

DRUGS (4)
  1. YASMIN [Suspect]
     Indication: HORMONE LEVEL ABNORMAL
     Dosage: 1 PILL/DAY
     Dates: start: 20060809, end: 2006
  2. YASMIN [Suspect]
     Indication: POLYCYSTIC OVARIES
  3. CEPHALEXIN [Concomitant]
  4. KEFLEX [Concomitant]
     Indication: CELLULITIS

REACTIONS (7)
  - Deep vein thrombosis [Recovered/Resolved]
  - Injury [Recovered/Resolved]
  - Pain [Recovered/Resolved]
  - General physical health deterioration [Recovered/Resolved]
  - Emotional distress [None]
  - Anxiety [None]
  - Pain [None]
